FAERS Safety Report 20452001 (Version 3)
Quarter: 2022Q2

REPORT INFORMATION
  Report Type: Report from Study
  Country: None (occurrence: CN)
  Receive Date: 20220209
  Receipt Date: 20220617
  Transmission Date: 20220721
  Serious: Yes (Hospitalization)
  Sender: FDA-Public Use
  Company Number: CN-Jiangsu Hengrui Medicine Co., Ltd.-2125744

PATIENT
  Age: 74 Year
  Sex: Male
  Weight: 80 kg

DRUGS (15)
  1. OXALIPLATIN [Suspect]
     Active Substance: OXALIPLATIN
     Indication: Colon cancer stage IV
     Route: 041
     Dates: start: 20211206, end: 20211206
  2. CAPECITABINE [Suspect]
     Active Substance: CAPECITABINE
     Route: 048
     Dates: start: 20211206, end: 20211220
  3. SERPLULIMAB [Suspect]
     Active Substance: SERPLULIMAB
     Route: 041
     Dates: start: 20211206, end: 20220125
  4. HLX-04 [Suspect]
     Active Substance: HLX-04
     Route: 041
     Dates: start: 20211206, end: 20220125
  5. Metoprolol Tablets [Concomitant]
     Route: 048
  6. VALSARTAN [Concomitant]
     Active Substance: VALSARTAN
     Route: 048
  7. Compound Reserpine And Triamterene Tablets [Concomitant]
     Route: 048
  8. DEXAMETHASONE SODIUM PHOSPHATE [Concomitant]
     Active Substance: DEXAMETHASONE SODIUM PHOSPHATE
     Route: 041
     Dates: start: 20211206, end: 20211206
  9. DIPHENHYDRAMINE [Concomitant]
     Active Substance: DIPHENHYDRAMINE
     Dates: start: 20211206, end: 20211206
  10. FAMOTIDINE [Concomitant]
     Active Substance: FAMOTIDINE
     Route: 041
     Dates: start: 20211206, end: 20211206
  11. Tropisetron Hydrochloride Injection [Concomitant]
     Route: 041
     Dates: start: 20211206, end: 20211206
  12. Ondansetron Hydrochloride Injection [Concomitant]
     Route: 041
     Dates: start: 20211206, end: 20211206
  13. ONDANSETRON HYDROCHLORIDE [Concomitant]
     Active Substance: ONDANSETRON HYDROCHLORIDE
     Route: 048
     Dates: start: 20211206
  14. YI QI WEI XUE JIAO NANG [Concomitant]
     Route: 048
     Dates: start: 20211202
  15. AVASTIN [Suspect]
     Active Substance: BEVACIZUMAB

REACTIONS (1)
  - Amaurosis fugax [Not Recovered/Not Resolved]

NARRATIVE: CASE EVENT DATE: 20211207
